FAERS Safety Report 5056359-8 (Version None)
Quarter: 2006Q3

REPORT INFORMATION
  Report Type: 
  Country: None (occurrence: None)
  Receive Date: 20060720
  Receipt Date: 20060527
  Transmission Date: 20061208
  Serious: Yes (Hospitalization)
  Sender: FDA-Public Use
  Company Number: US-ROCHE-449866

PATIENT
  Age: 53 Year
  Sex: Female
  Weight: 90.7 kg

DRUGS (13)
  1. PEGASYS [Suspect]
     Dosage: WEEKLY.
     Route: 058
     Dates: start: 20060519, end: 20060526
  2. PEGASYS [Suspect]
     Route: 058
     Dates: start: 20060616, end: 20060623
  3. RIBAVIRIN [Suspect]
     Indication: HEPATITIS C
     Route: 048
     Dates: start: 20060519, end: 20060526
  4. RIBAVIRIN [Suspect]
     Route: 048
     Dates: start: 20060616
  5. HYDROCHLOROTHIAZIDE [Concomitant]
     Indication: HYPERTENSION
     Dosage: WITHHELD DURING HOSPITALISATION.
     Route: 048
  6. ALLOPURINOL [Concomitant]
     Indication: GOUT
     Route: 048
  7. ESTRADIOL [Concomitant]
     Indication: MENOPAUSE
     Route: 048
  8. MEDROXYPROGESTERONE [Concomitant]
     Indication: MENOPAUSE
     Route: 048
  9. IBUPROFEN [Concomitant]
     Dosage: 600 MG QID PRN.
     Route: 048
  10. PROTONIX [Concomitant]
  11. MULTIVITAMIN NOS [Concomitant]
     Dosage: DAILY.
  12. MILK THISTLE [Concomitant]
  13. GLUCOSAMINE SULFATE/CHONDROITIN [Concomitant]
     Dosage: DAILY.

REACTIONS (6)
  - DEHYDRATION [None]
  - DIARRHOEA [None]
  - HEART RATE DECREASED [None]
  - HYPOTENSION [None]
  - NAUSEA [None]
  - VOMITING [None]
